FAERS Safety Report 26195803 (Version 1)
Quarter: 2025Q4

REPORT INFORMATION
  Report Type: Spontaneous
  Country: US (occurrence: US)
  Receive Date: 20251224
  Receipt Date: 20251224
  Transmission Date: 20260117
  Serious: Yes (Other)
  Sender: LUPIN
  Company Number: US-LUPIN PHARMACEUTICALS INC.-2025-11557

PATIENT
  Age: 54 Year
  Sex: Male

DRUGS (4)
  1. QUETIAPINE [Suspect]
     Active Substance: QUETIAPINE
     Indication: Dialysis disequilibrium syndrome
     Dosage: 75 MILLIGRAM (ADMINISTERED ONLY ON HEMODIALYSIS DAYS)
     Route: 061
  2. QUETIAPINE [Suspect]
     Active Substance: QUETIAPINE
     Indication: Prophylaxis
  3. QUETIAPINE [Suspect]
     Active Substance: QUETIAPINE
     Indication: Premedication
  4. QUETIAPINE [Suspect]
     Active Substance: QUETIAPINE
     Indication: Prophylaxis

REACTIONS (3)
  - Psychotic disorder [Unknown]
  - Product dose omission in error [Unknown]
  - Off label use [Unknown]
